FAERS Safety Report 16844613 (Version 1)
Quarter: 2019Q3

REPORT INFORMATION
  Report Type: Spontaneous
  Country: SE (occurrence: SE)
  Receive Date: 20190924
  Receipt Date: 20190924
  Transmission Date: 20191005
  Serious: Yes (Death, Life-Threatening, Hospitalization, Other)
  Sender: FDA-Public Use
  Company Number: SE-ALEMBIC PHARMACUETICALS LIMITED-2019SCAL000665

PATIENT

DRUGS (12)
  1. METOPROLOL TARTRATE. [Suspect]
     Active Substance: METOPROLOL TARTRATE
     Dosage: 1 MG
     Route: 042
  2. ERYTHROMYCIN. [Interacting]
     Active Substance: ERYTHROMYCIN
     Indication: RALES
     Dosage: UNK
  3. CLONIDINE HYDROCHLORIDE. [Suspect]
     Active Substance: CLONIDINE HYDROCHLORIDE
     Indication: BLOOD PRESSURE MEASUREMENT
     Dosage: 150 MILLIGRAM
     Route: 042
  4. CLONIDINE HYDROCHLORIDE. [Suspect]
     Active Substance: CLONIDINE HYDROCHLORIDE
     Dosage: 75 MILLIGRAM
     Route: 042
  5. CALCIUM [Concomitant]
     Active Substance: CALCIUM
     Indication: HYPERKALAEMIA
     Dosage: UNK
  6. ESCITALOPRAM [Interacting]
     Active Substance: ESCITALOPRAM OXALATE
     Indication: DEPRESSION
     Dosage: 15 MILLIGRAM
  7. SODIUM BICARBONATE. [Concomitant]
     Active Substance: SODIUM BICARBONATE
     Indication: HYPERKALAEMIA
     Dosage: UNK
  8. VENLAFAXINE HYDROCHLORIDE. [Suspect]
     Active Substance: VENLAFAXINE HYDROCHLORIDE
     Indication: DEPRESSION
     Dosage: 225 MILLIGRAM
  9. INSULIN [Concomitant]
     Active Substance: INSULIN NOS
     Indication: HYPERKALAEMIA
     Dosage: UNK
  10. METOPROLOL TARTRATE. [Suspect]
     Active Substance: METOPROLOL TARTRATE
     Indication: ATRIAL FIBRILLATION
     Dosage: 4 MILLIGRAM
     Route: 042
  11. METOPROLOL TARTRATE. [Suspect]
     Active Substance: METOPROLOL TARTRATE
     Dosage: 2.5 MG
     Route: 042
  12. ESCITALOPRAM [Interacting]
     Active Substance: ESCITALOPRAM OXALATE
     Dosage: HAD BEEN INCREASED TO ITS CURRENT DOSE 3 MONTHS AGO

REACTIONS (24)
  - Eye movement disorder [Unknown]
  - Ventricular fibrillation [Fatal]
  - Renal failure [Unknown]
  - Hyperkalaemia [Unknown]
  - Ventricular tachycardia [Unknown]
  - Muscle rigidity [Unknown]
  - Hyperreflexia [Unknown]
  - Agitation [Unknown]
  - Clonus [Unknown]
  - Mydriasis [Unknown]
  - Myocardial infarction [Fatal]
  - Serotonin syndrome [Unknown]
  - Coma scale abnormal [Recovering/Resolving]
  - Tachypnoea [Unknown]
  - Hypotension [Unknown]
  - Nervous system disorder [Recovering/Resolving]
  - Atrial fibrillation [Unknown]
  - Depressed level of consciousness [Unknown]
  - Drug interaction [Unknown]
  - Extensor plantar response [Unknown]
  - Anuria [Unknown]
  - Hypertension [None]
  - Cardiac arrest [Fatal]
  - Drug ineffective [Unknown]
